FAERS Safety Report 5792636-0 (Version None)
Quarter: 2008Q2

REPORT INFORMATION
  Report Type: 
  Country: None (occurrence: None)
  Receive Date: 20080624
  Receipt Date: 20080610
  Transmission Date: 20081010
  Serious: Yes (Death)
  Sender: FDA-Public Use
  Company Number: 000786

PATIENT
  Age: 80 Year
  Sex: Male
  Weight: 57 kg

DRUGS (8)
  1. PLETAL [Suspect]
     Indication: CEREBRAL INFARCTION
     Dosage: 100 MG, BID ORAL
     Route: 048
     Dates: start: 20070410, end: 20070519
  2. OLMETEC (OLMESARTAN MEDOXOMIL) TABLET [Concomitant]
  3. URALYT (POTASSIUM CITRATE SODIUM CITRATE) TABLET [Concomitant]
  4. MUCOSTA (REBAMIPIDE) TABLET [Concomitant]
  5. OZAGREL SODIUM (OZAGREL SODIUM) INJECTION [Concomitant]
  6. NEUFAN (ALLOPURINOL) TABLET [Concomitant]
  7. SYMMETREL (AMANDADINE HYDROCHLORIDE) TABLET [Concomitant]
  8. TECHNIS (IFENPRODIL TARTRATE) TABLET [Concomitant]

REACTIONS (5)
  - CARDIAC ARREST [None]
  - DYSPHAGIA [None]
  - GASTROINTESTINAL HAEMORRHAGE [None]
  - NO THERAPEUTIC RESPONSE [None]
  - SHOCK HAEMORRHAGIC [None]
